FAERS Safety Report 16880106 (Version 1)
Quarter: 2020Q3

REPORT INFORMATION
  Report Type: Report from Study
  Country: US (occurrence: US)
  Receive Date: 20191003
  Receipt Date: 20191003
  Transmission Date: 20201104
  Serious: Yes (Hospitalization)
  Sender: FDA-Public Use
  Company Number: US-MYLANLABS-2019M1092037

PATIENT
  Age: 72 Year
  Sex: Female

DRUGS (11)
  1. DIGOXIN. [Suspect]
     Active Substance: DIGOXIN
     Indication: PRODUCT USED FOR UNKNOWN INDICATION
     Dosage: MONDAY TO FRIDAY
     Route: 048
  2. POSACONAZOLE [Interacting]
     Active Substance: POSACONAZOLE
     Indication: PNEUMONIA FUNGAL
     Route: 048
  3. ESCITALOPRAM [Concomitant]
     Active Substance: ESCITALOPRAM OXALATE
     Route: 065
  4. UPROSERTIB. [Interacting]
     Active Substance: UPROSERTIB
     Indication: ACUTE MYELOID LEUKAEMIA RECURRENT
     Route: 065
  5. TORASEMIDE [Concomitant]
     Active Substance: TORSEMIDE
     Route: 065
  6. VANCOMYCIN [Concomitant]
     Active Substance: VANCOMYCIN
     Dosage: 1 GRAM
     Route: 042
  7. ALLOPURINOL. [Concomitant]
     Active Substance: ALLOPURINOL
     Route: 065
  8. TRAMETINIB [Concomitant]
     Active Substance: TRAMETINIB
     Indication: ACUTE MYELOID LEUKAEMIA RECURRENT
     Route: 065
  9. VANCOMYCIN [Concomitant]
     Active Substance: VANCOMYCIN
     Indication: FEBRILE NEUTROPENIA
     Dosage: LOADING DOSE
     Route: 042
  10. AZTREONAM. [Concomitant]
     Active Substance: AZTREONAM
     Indication: FEBRILE NEUTROPENIA
     Route: 042
  11. METRONIDAZOLE. [Concomitant]
     Active Substance: METRONIDAZOLE
     Indication: FEBRILE NEUTROPENIA
     Route: 042

REACTIONS (5)
  - Atrial fibrillation [Recovered/Resolved]
  - Drug interaction [Recovered/Resolved]
  - Ventricular tachycardia [Recovered/Resolved]
  - Bradycardia [Recovered/Resolved]
  - Cardioactive drug level increased [Recovered/Resolved]
